FAERS Safety Report 23044493 (Version 1)
Quarter: 2023Q4

REPORT INFORMATION
  Report Type: Spontaneous
  Country: JP (occurrence: JP)
  Receive Date: 20231009
  Receipt Date: 20231009
  Transmission Date: 20240110
  Serious: Yes (Death, Hospitalization)
  Sender: FDA-Public Use
  Company Number: JP-STERISCIENCE B.V.-2023-ST-001986

PATIENT
  Age: 73 Year
  Sex: Male

DRUGS (5)
  1. MEROPENEM [Suspect]
     Active Substance: MEROPENEM
     Indication: Escherichia infection
     Dosage: UNK
     Route: 065
  2. AZACITIDINE [Concomitant]
     Active Substance: AZACITIDINE
     Indication: Acute myeloid leukaemia
     Dosage: 75 MILLIGRAM/SQ. METER, QD, RECEIVED AS MONOTHERAPY ON EVERY 4 WEEKS AND LATER RECEIVED IN COMBINATI
     Route: 058
  3. VENETOCLAX [Concomitant]
     Active Substance: VENETOCLAX
     Indication: Acute myeloid leukaemia
     Dosage: 400 MILLIGRAM, QD, RECEIVED FOR DAYS 1 TO 28
     Route: 048
  4. VENETOCLAX [Concomitant]
     Active Substance: VENETOCLAX
     Dosage: 200 MILLIGRAM, QD, RECEIVED FOR DAYS 1 TO 28
     Route: 048
  5. VENETOCLAX [Concomitant]
     Active Substance: VENETOCLAX
     Dosage: DOSE REDUCED
     Route: 065

REACTIONS (1)
  - Drug ineffective [Fatal]
